FAERS Safety Report 20021797 (Version 1)
Quarter: 2021Q4

REPORT INFORMATION
  Report Type: Spontaneous
  Country: CN (occurrence: CN)
  Receive Date: 20211101
  Receipt Date: 20211101
  Transmission Date: 20220304
  Serious: Yes (Hospitalization)
  Sender: FDA-Public Use
  Company Number: CN-BAXTER-2021BAX033745

PATIENT
  Age: 19 Year
  Sex: Female

DRUGS (4)
  1. CYCLOPHOSPHAMIDE [Suspect]
     Active Substance: CYCLOPHOSPHAMIDE
     Indication: Acute lymphocytic leukaemia
     Dosage: CYCLOPHOSPHAMIDE 0.4 G + 0.9% SODIUM CHLORIDE INJECTION 250 ML
     Route: 041
     Dates: start: 20211011, end: 20211014
  2. SODIUM CHLORIDE [Suspect]
     Active Substance: SODIUM CHLORIDE
     Indication: Medication dilution
     Dosage: CYCLOPHOSPHAMIDE 0.4 G + 0.9 % SODIUM CHLORIDE INJECTION 250 ML
     Route: 041
     Dates: start: 20211011, end: 20211014
  3. SODIUM CHLORIDE [Suspect]
     Active Substance: SODIUM CHLORIDE
     Dosage: DOXORUBICIN HYDROCHLORIDE 50 MG + 0.9% SODIUM CHLORIDE INJECTION.500 ML
     Route: 041
     Dates: start: 20211015, end: 20211015
  4. DOXORUBICIN HYDROCHLORIDE [Suspect]
     Active Substance: DOXORUBICIN HYDROCHLORIDE
     Indication: Acute lymphocytic leukaemia
     Dosage: DOXORUBICIN HYDROCHLORIDE 50 MG + SODIUM CHLORIDE INJECTION.500 ML
     Route: 041
     Dates: start: 20211015, end: 20211015

REACTIONS (2)
  - Myelosuppression [Recovering/Resolving]
  - Pyrexia [Recovering/Resolving]

NARRATIVE: CASE EVENT DATE: 20211016
